FAERS Safety Report 5174725-7 (Version None)
Quarter: 2006Q4

REPORT INFORMATION
  Report Type: 
  Country: None (occurrence: None)
  Receive Date: 20061206
  Receipt Date: 20061124
  Transmission Date: 20070319
  Serious: Yes (Death, Life-Threatening, Hospitalization, Other)
  Sender: FDA-Public Use
  Company Number: 2006143330

PATIENT
  Age: 80 Year
  Sex: Female

DRUGS (15)
  1. LYRICA [Suspect]
     Indication: NEURALGIA
     Dosage: 150 MG (75 MG, 2 IN 1 D), ORAL
     Route: 048
     Dates: start: 20060921, end: 20060924
  2. FEMARA [Concomitant]
  3. ACETAMINOPHEN AND TRAMADOL HCL [Concomitant]
  4. BUPRENORPHINE HCL [Concomitant]
  5. BOREA (MEGESTROL ACETATE) [Concomitant]
  6. FORTECORTIN (DEXAMETHASONE) [Concomitant]
  7. LORAZEPAM [Concomitant]
  8. OMEPRAZOLE [Concomitant]
  9. CALCIUM (CALCIUM) [Concomitant]
  10. ENALAPRIL MALEATE [Concomitant]
  11. AMERIDE (AMILORIDE HYDROCHLORIDE, HYDROCHLOROTHIAZIDE) [Concomitant]
  12. PANTABEN (ISPAGHULA HUSK) [Concomitant]
  13. MOVICOL (MACROGOL, POTASSIUM CHLORIDE, SODIUM BICARBONATE, SODIUM CHLO [Concomitant]
  14. DALTEPARIN SODIUM [Concomitant]
  15. ZOMETA [Concomitant]

REACTIONS (8)
  - CARDIAC FAILURE [None]
  - DEPRESSED LEVEL OF CONSCIOUSNESS [None]
  - HYPOTENSION [None]
  - PNEUMONIA [None]
  - RENAL FAILURE ACUTE [None]
  - RESPIRATORY DISTRESS [None]
  - SOMNOLENCE [None]
  - SUBILEUS [None]
